FAERS Safety Report 19567678 (Version 1)
Quarter: 2021Q3

REPORT INFORMATION
  Report Type: Report from Study
  Country: GT (occurrence: GT)
  Receive Date: 20210714
  Receipt Date: 20210714
  Transmission Date: 20211014
  Serious: Yes (Other)
  Sender: FDA-Public Use
  Company Number: PHHY2018GT070305

PATIENT
  Sex: Female

DRUGS (1)
  1. GILENYA [Suspect]
     Active Substance: FINGOLIMOD HYDROCHLORIDE
     Indication: MULTIPLE SCLEROSIS
     Dosage: 0.5 MG, QD
     Route: 048
     Dates: start: 20180613

REACTIONS (12)
  - Malaise [Unknown]
  - Blood glucose decreased [Unknown]
  - Insomnia [Unknown]
  - Somnolence [Unknown]
  - Feeling abnormal [Unknown]
  - Fatigue [Unknown]
  - Anxiety [Unknown]
  - Eye haemorrhage [Unknown]
  - Decreased appetite [Unknown]
  - Weight decreased [Unknown]
  - Ocular hyperaemia [Unknown]
  - Stress [Unknown]
